FAERS Safety Report 8544178-7 (Version None)
Quarter: 2012Q3

REPORT INFORMATION
  Report Type: 
  Country: None (occurrence: None)
  Receive Date: 20120727
  Receipt Date: 20120718
  Transmission Date: 20120928
  Serious: Yes (Other)
  Sender: FDA-Public Use
  Company Number: FR-SANOFI-AVENTIS-2012SA044362

PATIENT
  Age: 59 Year
  Sex: Male
  Weight: 108 kg

DRUGS (6)
  1. NEULASTA [Concomitant]
     Route: 058
     Dates: start: 20120106
  2. CABAZITAXEL [Suspect]
     Indication: PROSTATE CANCER METASTATIC
     Route: 042
     Dates: start: 20120105, end: 20120105
  3. CABAZITAXEL [Suspect]
     Route: 042
     Dates: start: 20120531, end: 20120531
  4. PREDNISOLONE [Suspect]
     Indication: PROSTATE CANCER METASTATIC
     Route: 048
     Dates: start: 20120105, end: 20120620
  5. ZOMETA [Concomitant]
     Route: 042
     Dates: start: 20110601
  6. SPASFON-LYOC [Concomitant]
     Route: 048
     Dates: start: 20120517, end: 20120527

REACTIONS (1)
  - CHEMICAL CYSTITIS [None]
